FAERS Safety Report 10193108 (Version 2)
Quarter: 2014Q2

REPORT INFORMATION
  Report Type: Spontaneous
  Country: US (occurrence: US)
  Receive Date: 20140524
  Receipt Date: 20140524
  Transmission Date: 20141212
  Serious: No
  Sender: FDA-Public Use
  Company Number: US-SANOFI-AVENTIS-2013SA042106

PATIENT
  Age: 81 Year
  Sex: Female
  Weight: 104 kg

DRUGS (16)
  1. SOLOSTAR [Suspect]
     Indication: TYPE 2 DIABETES MELLITUS
     Dates: start: 20130410
  2. SOLOSTAR [Suspect]
     Indication: TYPE 2 DIABETES MELLITUS
     Dosage: 40-60UNITS AT NIGHT
     Dates: start: 20130401, end: 20130510
  3. SOLOSTAR [Suspect]
     Indication: TYPE 2 DIABETES MELLITUS
     Dosage: 40-60UNITS AT NIGHT
     Dates: start: 20130401, end: 20130510
  4. LANTUS SOLOSTAR [Suspect]
     Indication: TYPE 2 DIABETES MELLITUS
     Dosage: DOSE:40 UNIT(S)
     Route: 051
     Dates: start: 20130410
  5. LANTUS SOLOSTAR [Suspect]
     Indication: TYPE 2 DIABETES MELLITUS
     Dosage: FREQUENCY- 40-60 UNITS AT NIGHT
     Route: 051
     Dates: start: 20130401, end: 20130510
  6. LANTUS SOLOSTAR [Suspect]
     Indication: TYPE 2 DIABETES MELLITUS
     Dosage: FREQUENCY- 40-60 UNITS AT NIGHT
     Route: 051
     Dates: start: 20130401, end: 20130510
  7. AMLODIPINE BESILATE [Concomitant]
  8. FUROSEMIDE [Concomitant]
     Indication: JOINT SWELLING
  9. MOEXIPRIL HYDROCHLORIDE [Concomitant]
  10. PRILOSEC [Concomitant]
     Indication: BARRETT^S OESOPHAGUS
  11. PRAVASTATIN [Concomitant]
  12. NALFON [Concomitant]
     Indication: ARTHROPATHY
  13. NALFON [Concomitant]
     Indication: ANKLE FRACTURE
  14. VITAMIN D3 [Concomitant]
     Indication: LOWER LIMB FRACTURE
  15. VITAMIN D3 [Concomitant]
     Indication: ANKLE FRACTURE
  16. CALCIUM MAGNESIUM ZINC [Concomitant]

REACTIONS (5)
  - Joint swelling [Unknown]
  - Dry mouth [Not Recovered/Not Resolved]
  - Blood glucose increased [Not Recovered/Not Resolved]
  - Injection site discolouration [Not Recovered/Not Resolved]
  - Injection site pain [Not Recovered/Not Resolved]
